FAERS Safety Report 16821441 (Version 2)
Quarter: 2019Q4

REPORT INFORMATION
  Report Type: Report from Study
  Country: US (occurrence: US)
  Receive Date: 20190918
  Receipt Date: 20191118
  Transmission Date: 20200122
  Serious: No
  Sender: FDA-Public Use
  Company Number: PHEH2019US038547

PATIENT
  Age: 47 Year
  Sex: Female

DRUGS (1)
  1. COSENTYX [Suspect]
     Active Substance: SECUKINUMAB
     Indication: PSORIASIS
     Route: 065

REACTIONS (4)
  - Dizziness [Recovered/Resolved]
  - Injection site pain [Unknown]
  - Injection site haemorrhage [Unknown]
  - Abdominal discomfort [Recovered/Resolved]
